FAERS Safety Report 18712676 (Version 1)
Quarter: 2021Q1

REPORT INFORMATION
  Report Type: Spontaneous
  Country: GB (occurrence: GB)
  Receive Date: 20210107
  Receipt Date: 20210107
  Transmission Date: 20210419
  Serious: Yes (Life-Threatening, Hospitalization)
  Sender: FDA-Public Use
  Company Number: GB-MYLANLABS-2021M1000539

PATIENT
  Age: 56 Year
  Sex: Male

DRUGS (7)
  1. RINGERS LACTATE [Suspect]
     Active Substance: CALCIUM CHLORIDE\POTASSIUM CHLORIDE\SODIUM LACTATE
     Indication: HYPOTENSION
     Dosage: 500 MILLILITER
     Route: 040
  2. NOREPINEPHRINE. [Concomitant]
     Active Substance: NOREPINEPHRINE
     Indication: HYPOTENSION
     Dosage: 5 MG INTO THE REMAINING 500 ML OF CRYSTALLOID; PRE?HOSPITAL
  3. OXYCODONE [Suspect]
     Active Substance: OXYCODONE
     Indication: PRODUCT USED FOR UNKNOWN INDICATION
     Dosage: UNK
     Route: 048
  4. NOREPINEPHRINE. [Concomitant]
     Active Substance: NOREPINEPHRINE
     Dosage: STARTED PERIPHERALLY IN THE ANTECUBITAL FOSSA AT A RATE OF 0.02 UG/KG/MIN..
  5. GLYCERYL TRINITRATE [Suspect]
     Active Substance: NITROGLYCERIN
     Indication: CARDIAC ARREST
     Dosage: BOLUSES OF 0.5 MG UP TO 2 MG
     Route: 042
  6. MORPHINE [Suspect]
     Active Substance: MORPHINE
     Indication: PRODUCT USED FOR UNKNOWN INDICATION
     Dosage: UNK
     Route: 048
  7. TRAMADOL. [Suspect]
     Active Substance: TRAMADOL
     Indication: PRODUCT USED FOR UNKNOWN INDICATION
     Dosage: UNK
     Route: 048

REACTIONS (6)
  - Drug ineffective [Unknown]
  - Intentional overdose [Unknown]
  - Hypotension [Recovering/Resolving]
  - Suicide attempt [Unknown]
  - Respiratory rate decreased [Recovering/Resolving]
  - Obstructive airways disorder [Recovering/Resolving]
